FAERS Safety Report 8376878-6 (Version None)
Quarter: 2012Q2

REPORT INFORMATION
  Report Type: 
  Country: None (occurrence: None)
  Receive Date: 20120522
  Receipt Date: 20120510
  Transmission Date: 20120825
  Serious: No
  Sender: FDA-Public Use
  Company Number: CA-JNJFOC-20120511812

PATIENT
  Sex: Male
  Weight: 68 kg

DRUGS (3)
  1. IMURAN [Suspect]
     Indication: PRODUCT USED FOR UNKNOWN INDICATION
     Route: 065
  2. REMICADE [Suspect]
     Indication: CROHN'S DISEASE
     Dosage: 18TH INFUSION
     Route: 042
     Dates: start: 20091221
  3. REMICADE [Suspect]
     Route: 042
     Dates: start: 20120305

REACTIONS (1)
  - HERPES ZOSTER [None]
